FAERS Safety Report 5746218-7 (Version None)
Quarter: 2008Q2

REPORT INFORMATION
  Report Type: 
  Country: None (occurrence: None)
  Receive Date: 20080522
  Receipt Date: 20080516
  Transmission Date: 20081010
  Serious: Yes (Hospitalization, Other)
  Sender: FDA-Public Use
  Company Number: US-ROCHE-561771

PATIENT
  Sex: Female
  Weight: 76.5 kg

DRUGS (2)
  1. XELODA [Suspect]
     Indication: BREAST CANCER
     Dosage: 1500 MG IN THE AM AND 2000 MG IN THE PM.
     Route: 048
     Dates: start: 20080425, end: 20080425
  2. IXEMPRA KIT [Concomitant]
     Indication: BREAST CANCER
     Route: 042
     Dates: start: 20080416

REACTIONS (3)
  - PALMAR-PLANTAR ERYTHRODYSAESTHESIA SYNDROME [None]
  - PANCREATITIS ACUTE [None]
  - STOMATITIS [None]
